FAERS Safety Report 9074875 (Version 1)
Quarter: 2013Q1

REPORT INFORMATION
  Report Type: Spontaneous
  Country: US (occurrence: US)
  Receive Date: 20130129
  Receipt Date: 20130129
  Transmission Date: 20140127
  Serious: Yes (Hospitalization)
  Sender: FDA-Public Use
  Company Number: US-ABBOTT-12P-163-0937818-00

PATIENT
  Age: 52 Year
  Sex: Female
  Weight: 69.46 kg

DRUGS (11)
  1. HUMIRA 40 MG/ 0.8 ML PRE-FILLED SYRINGE [Suspect]
     Indication: CROHN^S DISEASE
  2. INFLIXIMAB [Suspect]
     Indication: CROHN^S DISEASE
     Dosage: 7 DOSESE DAILY
     Route: 042
  3. INFLIXIMAB [Suspect]
     Dates: start: 20020627, end: 20020627
  4. INFLIXIMAB [Suspect]
     Dates: start: 20020829, end: 20071127
  5. INFLIXIMAB [Suspect]
     Dates: start: 20080122, end: 20080527
  6. ANTIBIOTICS [Concomitant]
     Indication: PRODUCT USED FOR UNKNOWN INDICATION
  7. ANTIHISTAMINES [Concomitant]
     Indication: PREMEDICATION
  8. ACETAMINOPHEN [Concomitant]
     Indication: PREMEDICATION
  9. CORTICOSTEROIDS [Concomitant]
     Indication: PREMEDICATION
  10. MESALAMINE [Concomitant]
     Indication: PRODUCT USED FOR UNKNOWN INDICATION
  11. ANTIDEPRESSANTS [Concomitant]
     Indication: PRODUCT USED FOR UNKNOWN INDICATION

REACTIONS (1)
  - Pneumonia [Recovered/Resolved]
